FAERS Safety Report 7169934-1 (Version None)
Quarter: 2010Q4

REPORT INFORMATION
  Report Type: 
  Country: None (occurrence: None)
  Receive Date: 20101206
  Receipt Date: 20101129
  Transmission Date: 20110411
  Serious: Yes (Other)
  Sender: FDA-Public Use
  Company Number: JHP201000360

PATIENT
  Age: 69 Year
  Sex: Female

DRUGS (2)
  1. COLY-MYCIN M [Suspect]
     Indication: PNEUMONIA BACTERIAL
     Dosage: 1 MILLION UNITS INITIALLY FOR 2 DAYS, INHALATION ;  2 MILLION UNITS 8 HOURLY, INHALATION
     Route: 055
  2. COLY-MYCIN M [Suspect]
     Indication: PNEUMONIA BACTERIAL
     Dosage: 1 MILLION UNITS INITIALLY FOR 2 DAYS, INHALATION ;  2 MILLION UNITS 8 HOURLY, INHALATION
     Route: 055

REACTIONS (2)
  - ALVEOLITIS ALLERGIC [None]
  - STENOTROPHOMONAS TEST POSITIVE [None]
